FAERS Safety Report 6965314-X (Version None)
Quarter: 2010Q3

REPORT INFORMATION
  Report Type: 
  Country: None (occurrence: None)
  Receive Date: 20100901
  Receipt Date: 20100817
  Transmission Date: 20110219
  Serious: Yes (Death)
  Sender: FDA-Public Use
  Company Number: 2010S1000142

PATIENT
  Sex: Female

DRUGS (2)
  1. INOMAX [Suspect]
     Indication: PREMATURE BABY
     Dosage: 20 PPM; CONT; INH
     Route: 055
  2. IMOVENT (DELIVERY SYSTEM) [Suspect]
     Indication: PREMATURE BABY
     Dosage: 20 PPM; CONT

REACTIONS (1)
  - MULTI-ORGAN FAILURE [None]
